FAERS Safety Report 7607671-7 (Version None)
Quarter: 2011Q3

REPORT INFORMATION
  Report Type: 
  Country: None (occurrence: None)
  Receive Date: 20110713
  Receipt Date: 20110321
  Transmission Date: 20111222
  Serious: Yes (Hospitalization)
  Sender: FDA-Public Use
  Company Number: PHFR2011GB02057

PATIENT
  Sex: Male

DRUGS (3)
  1. CLOZAPINE [Suspect]
     Indication: SCHIZOPHRENIA
     Route: 048
     Dates: start: 20080211
  2. PERINDOPRIL [Concomitant]
     Dosage: UNK
  3. AMLODIPINE [Concomitant]

REACTIONS (2)
  - FALL [None]
  - MUSCULAR WEAKNESS [None]
